FAERS Safety Report 8425095-X (Version None)
Quarter: 2012Q2

REPORT INFORMATION
  Report Type: 
  Country: None (occurrence: None)
  Receive Date: 20120611
  Receipt Date: 20120531
  Transmission Date: 20120825
  Serious: Yes (Other)
  Sender: FDA-Public Use
  Company Number: JP-VERTEX PHARMACEUTICALS INC.-AE-2012-004095

PATIENT
  Age: 68 Year
  Sex: Male

DRUGS (11)
  1. TELAVIC (TELAPREVIR) [Suspect]
     Indication: HEPATITIS C
     Route: 048
     Dates: start: 20120306, end: 20120430
  2. PEGINTERFERON ALFA-2A [Concomitant]
     Route: 051
     Dates: start: 20120424, end: 20120501
  3. REBETOL [Concomitant]
     Route: 048
     Dates: start: 20120417, end: 20120423
  4. REBETOL [Concomitant]
     Route: 048
     Dates: start: 20120529
  5. TSUMARA JUZENTAIHOTO EXTRACT GRANULES [Concomitant]
     Route: 048
  6. REBETOL [Concomitant]
     Indication: HEPATITIS C
     Route: 048
     Dates: start: 20120306, end: 20120416
  7. TELAVIC (TELAPREVIR) [Suspect]
     Route: 048
     Dates: start: 20120501, end: 20120507
  8. TELAVIC (TELAPREVIR) [Suspect]
     Route: 048
     Dates: start: 20120529
  9. PEGINTERFERON ALFA-2A [Concomitant]
     Indication: HEPATITIS C
     Route: 051
     Dates: start: 20120306, end: 20120417
  10. PEGINTERFERON ALFA-2A [Concomitant]
     Route: 051
     Dates: start: 20120529
  11. REBETOL [Concomitant]
     Route: 048
     Dates: start: 20120424, end: 20120507

REACTIONS (3)
  - RENAL IMPAIRMENT [None]
  - LOSS OF CONSCIOUSNESS [None]
  - HAEMOGLOBIN DECREASED [None]
